FAERS Safety Report 13420178 (Version 3)
Quarter: 2020Q4

REPORT INFORMATION
  Report Type: Spontaneous
  Country: US (occurrence: US)
  Receive Date: 20170407
  Receipt Date: 20201127
  Transmission Date: 20210113
  Serious: No
  Sender: FDA-Public Use
  Company Number: US-ASTRAZENECA-2017SE33155

PATIENT
  Age: 66 Year
  Sex: Female

DRUGS (25)
  1. MORPHINE SULFATE. [Suspect]
     Active Substance: MORPHINE SULFATE
     Dosage: UNK
     Route: 065
  2. CODEINE [Suspect]
     Active Substance: CODEINE
     Route: 065
  3. LEVAQUIN [Suspect]
     Active Substance: LEVOFLOXACIN
     Route: 065
  4. DEFINITY [Suspect]
     Active Substance: PERFLUTREN
     Dosage: UNK
     Route: 065
  5. EFFEXOR [Suspect]
     Active Substance: VENLAFAXINE HYDROCHLORIDE
     Dosage: UNK
     Route: 065
  6. ISOPROPYL ALCOHOL. [Suspect]
     Active Substance: ISOPROPYL ALCOHOL
     Route: 065
  7. CODEINE [Suspect]
     Active Substance: CODEINE
     Dosage: UNK
     Route: 065
  8. SULFAMETHOXAZOLE AND TRIMETHOPRIM [Suspect]
     Active Substance: SULFAMETHOXAZOLE\TRIMETHOPRIM
     Route: 065
  9. NEXIUM [Suspect]
     Active Substance: ESOMEPRAZOLE MAGNESIUM
     Dosage: UNK
     Route: 048
  10. NEXIUM [Suspect]
     Active Substance: ESOMEPRAZOLE MAGNESIUM
     Dosage: ESOMEPRAZOLE MAGNESIUM
     Route: 048
  11. AMOXIL [Suspect]
     Active Substance: AMOXICILLIN
     Dosage: UNK
     Route: 065
  12. PREDNISONE. [Suspect]
     Active Substance: PREDNISONE
     Route: 065
  13. DICLOFENAC SODIUM. [Suspect]
     Active Substance: DICLOFENAC SODIUM
     Dosage: UNK
     Route: 065
  14. HYDROMORPHONE HYDROCHLORIDE. [Suspect]
     Active Substance: HYDROMORPHONE HYDROCHLORIDE
     Route: 065
  15. ELAVIL [Suspect]
     Active Substance: AMITRIPTYLINE HYDROCHLORIDE
     Dosage: AMITRIPTYLINE HCL
     Route: 065
  16. NEFAZODONE HYDROCHLORIDE. [Suspect]
     Active Substance: NEFAZODONE HYDROCHLORIDE
     Route: 065
  17. PROPYLENE GLYCOL [Suspect]
     Active Substance: PROPYLENE GLYCOL
     Route: 065
  18. PAROXETINE. [Suspect]
     Active Substance: PAROXETINE
     Route: 065
  19. AMOXIL [Suspect]
     Active Substance: AMOXICILLIN
     Dosage: AMOXICILLIN TRIHYDRATE
     Route: 065
  20. VISTARIL [Suspect]
     Active Substance: HYDROXYZINE PAMOATE
     Dosage: UNK
     Route: 065
  21. VISTARIL [Suspect]
     Active Substance: HYDROXYZINE PAMOATE
     Dosage: HYDROXYZINE HYDROCHLORIDE
     Route: 065
  22. TALWIN [Suspect]
     Active Substance: PENTAZOCINE LACTATE
     Dosage: UNK
     Route: 065
  23. ZOLOFT [Suspect]
     Active Substance: SERTRALINE HYDROCHLORIDE
     Dosage: UNK
     Route: 065
  24. EFFEXOR [Suspect]
     Active Substance: VENLAFAXINE HYDROCHLORIDE
     Dosage: VENLAFAXINE HYDROCHLORIDE
     Route: 065
  25. ELAVIL [Suspect]
     Active Substance: AMITRIPTYLINE HYDROCHLORIDE
     Route: 065

REACTIONS (1)
  - Drug hypersensitivity [Unknown]
